FAERS Safety Report 13036460 (Version 2)
Quarter: 2016Q4

REPORT INFORMATION
  Report Type: Report from Study
  Country: BR (occurrence: BR)
  Receive Date: 20161216
  Receipt Date: 20161227
  Transmission Date: 20170207
  Serious: Yes (Hospitalization)
  Sender: FDA-Public Use
  Company Number: BR-B.I. PHARMACEUTICALS,INC./RIDGEFIELD-2016-BI-081559

PATIENT
  Age: 83 Year
  Sex: Female
  Weight: 85 kg

DRUGS (7)
  1. DIOSMIN [Concomitant]
     Active Substance: DIOSMIN
     Indication: PERIPHERAL SWELLING
     Route: 048
  2. LOSARTANA [Concomitant]
     Active Substance: LOSARTAN
     Indication: HEART VALVE OPERATION
     Route: 048
     Dates: start: 2014
  3. AAS [Concomitant]
     Active Substance: ASPIRIN
     Indication: HEART VALVE OPERATION
     Route: 048
     Dates: start: 2014
  4. GLIFAGE [Concomitant]
     Active Substance: METFORMIN HYDROCHLORIDE
     Indication: PROPHYLAXIS
     Route: 048
     Dates: start: 2012
  5. LOSARTANA [Concomitant]
     Active Substance: LOSARTAN
     Route: 048
     Dates: start: 2014
  6. OFEV [Suspect]
     Active Substance: NINTEDANIB
     Indication: IDIOPATHIC PULMONARY FIBROSIS
     Route: 048
     Dates: start: 20161118, end: 20161207
  7. OFEV [Suspect]
     Active Substance: NINTEDANIB
     Route: 048
     Dates: start: 20161220

REACTIONS (12)
  - Weight decreased [Recovered/Resolved]
  - Abdominal pain [Not Recovered/Not Resolved]
  - Dizziness [Recovered/Resolved]
  - Swelling [Not Recovered/Not Resolved]
  - Diverticulitis [Recovered/Resolved]
  - Abdominal pain [Recovered/Resolved]
  - Decreased appetite [Recovered/Resolved]
  - Diarrhoea [Recovered/Resolved]
  - Abdominal discomfort [Recovered/Resolved]
  - Polyuria [Not Recovered/Not Resolved]
  - Osteoarthritis [Not Recovered/Not Resolved]
  - Nausea [Recovered/Resolved]

NARRATIVE: CASE EVENT DATE: 20161121
